FAERS Safety Report 11756026 (Version 2)
Quarter: 2015Q4

REPORT INFORMATION
  Report Type: Spontaneous
  Country: US (occurrence: US)
  Receive Date: 20151119
  Receipt Date: 20151125
  Transmission Date: 20160304
  Serious: Yes (Hospitalization, Other)
  Sender: FDA-Public Use
  Company Number: US-PFIZER INC-2015392350

PATIENT
  Age: 89 Year
  Sex: Female
  Weight: 47.63 kg

DRUGS (4)
  1. METOPROLOL TARTRATE. [Suspect]
     Active Substance: METOPROLOL TARTRATE
     Dosage: UNK
  2. VENTAVIS [Suspect]
     Active Substance: ILOPROST
     Dosage: UNK
  3. REVATIO [Suspect]
     Active Substance: SILDENAFIL CITRATE
     Dosage: 20 MG, UNK
     Dates: start: 2006
  4. TRACLEER [Suspect]
     Active Substance: BOSENTAN
     Dosage: UNK

REACTIONS (5)
  - Iron deficiency anaemia [Unknown]
  - Pain [Unknown]
  - Feeling abnormal [Unknown]
  - Heart rate increased [Recovering/Resolving]
  - Dyspnoea [Recovering/Resolving]

NARRATIVE: CASE EVENT DATE: 201511
